FAERS Safety Report 7730734-2 (Version None)
Quarter: 2011Q3

REPORT INFORMATION
  Report Type: 
  Country: None (occurrence: None)
  Receive Date: 20110906
  Receipt Date: 20110829
  Transmission Date: 20111222
  Serious: Yes (Hospitalization)
  Sender: FDA-Public Use
  Company Number: FR-GLAXOSMITHKLINE-B0738591A

PATIENT
  Age: 38 Year
  Sex: Male

DRUGS (3)
  1. LAMICTAL [Suspect]
     Indication: BIPOLAR DISORDER
     Dosage: 100MG TWICE PER DAY
     Route: 048
     Dates: start: 20110520, end: 20110726
  2. SYMBICORT [Concomitant]
     Indication: ASTHMA
     Route: 065
  3. ESCITALOPRAM OXALATE [Suspect]
     Indication: BIPOLAR DISORDER
     Route: 048
     Dates: start: 20110520, end: 20110726

REACTIONS (9)
  - DERMATITIS BULLOUS [None]
  - SKIN LESION [None]
  - STEVENS-JOHNSON SYNDROME [None]
  - GENITAL ULCERATION [None]
  - RASH MORBILLIFORM [None]
  - MUCOSAL EROSION [None]
  - CHEILITIS [None]
  - PRURIGO [None]
  - NIKOLSKY'S SIGN [None]
